FAERS Safety Report 6373850-2 (Version None)
Quarter: 2009Q3

REPORT INFORMATION
  Report Type: 
  Country: None (occurrence: None)
  Receive Date: 20090924
  Receipt Date: 20090529
  Transmission Date: 20100115
  Serious: Yes (Other)
  Sender: FDA-Public Use
  Company Number: US-ASTRAZENECA-2009UW13905

PATIENT
  Age: 52 Year
  Sex: Male

DRUGS (2)
  1. SEROQUEL [Suspect]
     Indication: INSOMNIA
     Route: 048
  2. SEROQUEL [Suspect]
     Route: 048

REACTIONS (2)
  - DIABETES MELLITUS [None]
  - HYPERTENSION [None]
